FAERS Safety Report 5645638-9 (Version None)
Quarter: 2008Q1

REPORT INFORMATION
  Report Type: 
  Country: None (occurrence: None)
  Receive Date: 20080229
  Receipt Date: 20080219
  Transmission Date: 20080703
  Serious: Yes (Other)
  Sender: FDA-Public Use
  Company Number: US-PFIZER INC-2007037194

PATIENT
  Sex: Male
  Weight: 83.9 kg

DRUGS (7)
  1. VIAGRA [Suspect]
     Indication: ERECTILE DYSFUNCTION
     Route: 048
     Dates: start: 19990101, end: 20050101
  2. INSULIN [Concomitant]
     Indication: DIABETES MELLITUS
     Route: 058
  3. METFORMIN HCL [Concomitant]
  4. FELODIPINE [Concomitant]
     Indication: HYPERTENSION
     Route: 048
  5. GEMFIBROZIL [Concomitant]
     Indication: BLOOD CHOLESTEROL INCREASED
     Route: 048
  6. SIMVASTATIN [Concomitant]
     Indication: BLOOD CHOLESTEROL INCREASED
     Route: 048
  7. ASPIRIN [Concomitant]
     Route: 048

REACTIONS (2)
  - BLINDNESS [None]
  - OPTIC ISCHAEMIC NEUROPATHY [None]
